FAERS Safety Report 5727265-8 (Version None)
Quarter: 2008Q2

REPORT INFORMATION
  Report Type: 
  Country: None (occurrence: None)
  Receive Date: 20080505
  Receipt Date: 20080422
  Transmission Date: 20081010
  Serious: Yes (Other)
  Sender: FDA-Public Use
  Company Number: PHHY2008GB03965

PATIENT
  Sex: Female
  Weight: 50 kg

DRUGS (6)
  1. RASILEZ [Suspect]
     Indication: BLOOD PRESSURE INCREASED
     Dosage: 150 MG, BID
     Route: 048
     Dates: start: 20080317
  2. RASILEZ [Suspect]
     Dosage: 150 MG, QD
     Route: 048
  3. ZOPITAN [Concomitant]
     Indication: SLEEP DISORDER
  4. FLUPENTIXOL [Concomitant]
     Indication: MOOD ALTERED
  5. MOFANDRIL [Concomitant]
  6. CALIVHEN [Concomitant]

REACTIONS (5)
  - ARTHRALGIA [None]
  - DRY SKIN [None]
  - JOINT EFFUSION [None]
  - JOINT SWELLING [None]
  - RASH [None]
